FAERS Safety Report 11444718 (Version 1)
Quarter: 2015Q3

REPORT INFORMATION
  Report Type: Spontaneous
  Country: CA (occurrence: None)
  Receive Date: 20150901
  Receipt Date: 20150901
  Transmission Date: 20151125
  Serious: Yes (Hospitalization)
  Sender: FDA-Public Use
  Company Number: None

PATIENT
  Age: 75 Year
  Sex: Male
  Weight: 82.4 kg

DRUGS (4)
  1. FRAGMIN [Concomitant]
     Active Substance: DALTEPARIN SODIUM
  2. VALSARTAN. [Concomitant]
     Active Substance: VALSARTAN
  3. METOPROLOL [Concomitant]
     Active Substance: METOPROLOL
  4. NEXAVAR [Suspect]
     Active Substance: SORAFENIB
     Dates: start: 20140713

REACTIONS (5)
  - Malaise [None]
  - Somnolence [None]
  - Hypotension [None]
  - Pyrexia [None]
  - Decreased appetite [None]

NARRATIVE: CASE EVENT DATE: 20140715
